FAERS Safety Report 12923938 (Version 1)
Quarter: 2016Q4

REPORT INFORMATION
  Report Type: Spontaneous
  Country: US (occurrence: US)
  Receive Date: 20161109
  Receipt Date: 20161109
  Transmission Date: 20170207
  Serious: Yes (Life-Threatening, Hospitalization, Disabling, Other)
  Sender: FDA-Public Use
  Company Number: None

PATIENT
  Age: 37 Year
  Sex: Female
  Weight: 143.46 kg

DRUGS (11)
  1. CALCIUM [Concomitant]
     Active Substance: CALCIUM
  2. MULTIVITAMIN [Concomitant]
     Active Substance: VITAMINS
  3. VITAMIN B COMPLEX [Concomitant]
     Active Substance: CYANOCOBALAMIN\DEXPANTHENOL\NIACINAMIDE\PYRIDOXINE HYDROCHLORIDE\RIBOFLAVIN 5^-PHOSPHATE SODIUM\THIAMINE HYDROCHLORIDE\VITAMIN B COMPLEX
  4. LITHIUM. [Suspect]
     Active Substance: LITHIUM
     Indication: POST-TRAUMATIC STRESS DISORDER
     Dosage: 1 PILL TWICE A DAY BY MOUTH/ORAL
     Route: 048
     Dates: start: 20120101, end: 20120101
  5. BEE POLLEN [Concomitant]
     Active Substance: BEE POLLEN
  6. IB PROFIN [Concomitant]
  7. INHALER [Concomitant]
     Active Substance: UNSPECIFIED INGREDIENT
  8. EMERGEN-C [Concomitant]
     Active Substance: VITAMINS
  9. LITHIUM. [Suspect]
     Active Substance: LITHIUM
     Indication: BIPOLAR DISORDER
     Dosage: 1 PILL TWICE A DAY BY MOUTH/ORAL
     Route: 048
     Dates: start: 20120101, end: 20120101
  10. MEDICAL MARIJUANNA [Concomitant]
  11. IB PROTIN [Concomitant]

REACTIONS (13)
  - Hair growth abnormal [None]
  - Drooling [None]
  - Hypothyroidism [None]
  - Oedema [None]
  - Menstruation irregular [None]
  - Alopecia [None]
  - Fear of death [None]
  - Hyperhidrosis [None]
  - Palpitations [None]
  - Multi-organ disorder [None]
  - Incontinence [None]
  - Lacrimation increased [None]
  - Overdose [None]

NARRATIVE: CASE EVENT DATE: 20120101
